FAERS Safety Report 6016321-5 (Version None)
Quarter: 2008Q4

REPORT INFORMATION
  Report Type: 
  Country: None (occurrence: None)
  Receive Date: 20081218
  Receipt Date: 20081203
  Transmission Date: 20090506
  Serious: Yes (Hospitalization)
  Sender: FDA-Public Use
  Company Number: KV200800914

PATIENT
  Age: 40 Year
  Sex: Male

DRUGS (5)
  1. ISOSORBIDE MONONITRATE [Suspect]
     Indication: CHEST PAIN
     Dosage: 60 MG, QD, ORAL
     Route: 048
     Dates: start: 20050101
  2. LIPITOR [Concomitant]
  3. METOPROLOL TARTRATE [Concomitant]
  4. ASPIRIN [Concomitant]
  5. PLAVIX [Concomitant]

REACTIONS (3)
  - CHEST PAIN [None]
  - HEADACHE [None]
  - PRODUCT QUALITY ISSUE [None]
